FAERS Safety Report 7407311-6 (Version None)
Quarter: 2011Q2

REPORT INFORMATION
  Report Type: 
  Country: None (occurrence: None)
  Receive Date: 20110411
  Receipt Date: 20110330
  Transmission Date: 20111010
  Serious: Yes (Hospitalization)
  Sender: FDA-Public Use
  Company Number: PHHY2011MX26806

PATIENT
  Sex: Female

DRUGS (1)
  1. CO-DIOVAN [Suspect]
     Indication: HYPERTENSION
     Dosage: 1 DF, 1 TABLET (160/25 MG) PER DAY
     Dates: start: 20110320, end: 20110328

REACTIONS (4)
  - ASPHYXIA [None]
  - PYREXIA [None]
  - HYPERTENSION [None]
  - FATIGUE [None]
